FAERS Safety Report 6809626-9 (Version None)
Quarter: 2010Q2

REPORT INFORMATION
  Report Type: 
  Country: None (occurrence: None)
  Receive Date: 20100630
  Receipt Date: 20100619
  Transmission Date: 20101027
  Serious: Yes (Other)
  Sender: FDA-Public Use
  Company Number: US-PFIZER INC-2010077357

PATIENT
  Sex: Male
  Weight: 99.8 kg

DRUGS (9)
  1. ZYVOX [Suspect]
     Indication: CELLULITIS
     Dosage: UNK
     Route: 042
     Dates: start: 20100616
  2. LOVENOX [Concomitant]
     Indication: DEEP VEIN THROMBOSIS
     Dosage: 100 MG, 2X/DAY
  3. CIPROFLOXACIN [Concomitant]
     Indication: URINARY TRACT INFECTION
     Dosage: UNK
  4. VICODIN [Concomitant]
     Dosage: UNK
  5. COREG [Concomitant]
     Dosage: UNK
  6. ERYTHROMYCIN [Concomitant]
     Dosage: UNK
  7. LASIX [Concomitant]
     Dosage: UNK
  8. ASPIRIN [Concomitant]
     Dosage: UNK
  9. PEPCID [Concomitant]
     Dosage: UNK

REACTIONS (5)
  - HYPOAESTHESIA [None]
  - JOINT SWELLING [None]
  - LIMB DISCOMFORT [None]
  - MUSCLE CONTRACTIONS INVOLUNTARY [None]
  - OEDEMA PERIPHERAL [None]
